FAERS Safety Report 6268334-6 (Version None)
Quarter: 2009Q3

REPORT INFORMATION
  Report Type: 
  Country: None (occurrence: None)
  Receive Date: 20090715
  Receipt Date: 20090702
  Transmission Date: 20100115
  Serious: Yes (Other)
  Sender: FDA-Public Use
  Company Number: PHHY2009BR27130

PATIENT
  Sex: Female

DRUGS (5)
  1. DIOVAN [Suspect]
     Indication: BLOOD PRESSURE
     Dosage: 1 TABLET DAILY
     Route: 048
     Dates: start: 20070201
  2. CARBAMAZEPINE [Suspect]
     Indication: TRIGEMINAL NEURALGIA
     Dosage: 1 DF, BID
     Route: 048
     Dates: start: 19910101
  3. LEXOTAN [Concomitant]
     Indication: NERVOUSNESS
     Dosage: HALF TABLET OR 1/4TH TABLET TWICE A MONTH
     Route: 048
  4. LEXOTAN [Concomitant]
     Indication: INSOMNIA
  5. CILOSTAZOL [Concomitant]
     Dosage: UNK
     Route: 048
     Dates: start: 20070201

REACTIONS (5)
  - ARTHRITIS [None]
  - FALL [None]
  - INJURY [None]
  - SCAR [None]
  - URINARY TRACT INFECTION BACTERIAL [None]
